FAERS Safety Report 19372751 (Version 2)
Quarter: 2021Q2

REPORT INFORMATION
  Report Type: Report from Study
  Country: FR (occurrence: FR)
  Receive Date: 20210604
  Receipt Date: 20210604
  Transmission Date: 20210717
  Serious: Yes (Other)
  Sender: FDA-Public Use
  Company Number: FR-CELGENEUS-FRA-20210303485

PATIENT
  Sex: Male

DRUGS (1)
  1. IDHIFA [Suspect]
     Active Substance: ENASIDENIB MESYLATE
     Indication: ACUTE MYELOID LEUKAEMIA
     Dosage: 100 MILLIGRAM
     Route: 048
     Dates: start: 20210127

REACTIONS (8)
  - White blood cell count abnormal [Unknown]
  - Haemoglobin abnormal [Unknown]
  - Neutrophil count abnormal [Unknown]
  - Platelet disorder [Unknown]
  - Bone marrow myelogram abnormal [Not Recovered/Not Resolved]
  - Cytopenia [Not Recovered/Not Resolved]
  - Blood count abnormal [Unknown]
  - Eastern Cooperative Oncology Group performance status worsened [Unknown]

NARRATIVE: CASE EVENT DATE: 2021
